FAERS Safety Report 7791450-4 (Version None)
Quarter: 2011Q4

REPORT INFORMATION
  Report Type: 
  Country: None (occurrence: None)
  Receive Date: 20111003
  Receipt Date: 20110930
  Transmission Date: 20120403
  Serious: Yes (Other)
  Sender: FDA-Public Use
  Company Number: JP-SHIRE-CQT4-2011-00007

PATIENT
  Sex: Male
  Weight: 61.9 kg

DRUGS (10)
  1. ANAGRELIDE HCL [Suspect]
     Dosage: 1.5 MG, DAILY
     Route: 048
     Dates: start: 20110524, end: 20110830
  2. PROCAINE HYDROCHLORIDE INJ [Concomitant]
     Indication: ASPIRATION BONE MARROW
     Dosage: UNK UNK, UNKNOWN
     Dates: start: 20110831, end: 20110831
  3. DERMOVATE OINTMENT [Concomitant]
     Indication: RASH
     Dosage: UNK UNK, UNKNOWN
     Route: 065
     Dates: start: 20101130
  4. ALLOPURINOL [Concomitant]
     Indication: HYPERURICAEMIA
     Dosage: UNK
     Route: 065
     Dates: start: 20080909
  5. BUFFERIN COMBINATION TABLET A81 [Concomitant]
     Indication: ESSENTIAL THROMBOCYTHAEMIA
     Dosage: 81 MG, UNKNOWN
     Route: 065
     Dates: start: 20081021, end: 20110823
  6. ISOTONIC SODIUM CHLORIDE SOLUTION SYRINGE SN [Concomitant]
     Indication: COMPUTERISED TOMOGRAM
     Dosage: UNK UNK, UNKNOWN
     Dates: start: 20110831, end: 20110831
  7. ANAGRELIDE HCL [Suspect]
     Dosage: 1.0 MG, DAILY
     Route: 048
     Dates: start: 20110426, end: 20110523
  8. IOPAMIDOL [Concomitant]
     Indication: COMPUTERISED TOMOGRAM
     Dosage: UNK UNK, UNKNOWN
     Dates: start: 20110831, end: 20110831
  9. ANAGRELIDE HCL [Suspect]
     Indication: ESSENTIAL THROMBOCYTHAEMIA
     Dosage: 0.5 MG, 2X/DAY:BID
     Route: 048
     Dates: start: 20110831
  10. 10% SALICYLIC ACID OINTMENT TOHO [Concomitant]
     Indication: RASH
     Dosage: UNK UNK, UNKNOWN
     Dates: start: 20101130

REACTIONS (1)
  - CYTOGENETIC ABNORMALITY [None]
